FAERS Safety Report 9512041 (Version 3)
Quarter: 2013Q4

REPORT INFORMATION
  Report Type: Spontaneous
  Country: JP (occurrence: JP)
  Receive Date: 20130910
  Receipt Date: 20131106
  Transmission Date: 20140711
  Serious: Yes (Other)
  Sender: FDA-Public Use
  Company Number: JP-PFIZER INC-2013258910

PATIENT
  Age: 46 Year
  Sex: Male

DRUGS (7)
  1. LYRICA [Suspect]
     Dosage: 25 MG, 1X/DAY
     Route: 048
     Dates: start: 20130905, end: 20130906
  2. OXYCONTIN [Suspect]
     Dosage: UNK
     Route: 048
     Dates: start: 20130905
  3. HOCHUUEKKITOU [Suspect]
     Dosage: 7.5 G, 1X/DAY
     Route: 048
     Dates: start: 20130905
  4. BROTIZOLAM [Suspect]
     Dosage: 0.25 MG, 1X/DAY
     Route: 048
     Dates: start: 20130905
  5. HYPEN [Suspect]
     Dosage: UNK
     Route: 048
     Dates: start: 20130905
  6. LANSOPRAZOLE [Suspect]
     Dosage: UNK
     Route: 048
     Dates: start: 20130905
  7. NOVAMIN [Suspect]
     Dosage: UNK
     Route: 048
     Dates: start: 20130905

REACTIONS (3)
  - Atrioventricular block first degree [Unknown]
  - Bradycardia [Recovered/Resolved]
  - Malaise [Recovered/Resolved]
